FAERS Safety Report 4383273-3 (Version None)
Quarter: 2004Q2

REPORT INFORMATION
  Report Type: 
  Country: None (occurrence: None)
  Receive Date: 20040623
  Receipt Date: 20031208
  Transmission Date: 20050107
  Serious: Yes (Hospitalization)
  Sender: FDA-Public Use
  Company Number: FR-BRISTOL-MYERS SQUIBB COMPANY-12455259

PATIENT
  Age: 42 Year
  Sex: Female

DRUGS (12)
  1. ZERIT [Suspect]
     Indication: HIV INFECTION
     Route: 048
     Dates: start: 20020305, end: 20031107
  2. SUSTIVA [Suspect]
     Indication: HIV INFECTION
     Dosage: STOPPED 09-JAN-2004 RESTARTED 400 MG DAILY ON 11-JAN-2004.
     Route: 048
     Dates: start: 20031226, end: 20040115
  3. MANTADIX [Suspect]
     Indication: HEPATITIS C
     Route: 048
     Dates: start: 20030620, end: 20031107
  4. VIRACEPT [Suspect]
     Indication: HIV INFECTION
     Route: 048
     Dates: start: 20020305, end: 20031107
  5. ZIAGEN [Suspect]
     Indication: HIV INFECTION
     Route: 048
     Dates: start: 20020305, end: 20031107
  6. REBETOL [Suspect]
     Indication: HEPATITIS C
     Route: 048
     Dates: start: 20030620, end: 20031107
  7. PEGASYS [Suspect]
     Indication: HEPATITIS C
     Route: 058
     Dates: start: 20030620, end: 20031107
  8. INFLUENZA VACCINE [Concomitant]
     Route: 058
     Dates: start: 20031001
  9. CORTANCYL [Concomitant]
     Dates: start: 20031119
  10. ORBENIN CAP [Concomitant]
     Dates: start: 20031217, end: 20031231
  11. TRIFLUCAN [Concomitant]
     Dates: start: 20031130, end: 20031230
  12. PENTACARINAT [Concomitant]
     Dates: start: 20031218

REACTIONS (5)
  - DYSPHAGIA [None]
  - HEPATITIS [None]
  - JAUNDICE [None]
  - MITOCHONDRIAL CYTOPATHY [None]
  - POLYMYOSITIS [None]
